FAERS Safety Report 6202432-8 (Version None)
Quarter: 2009Q2

REPORT INFORMATION
  Report Type: 
  Country: None (occurrence: None)
  Receive Date: 20090521
  Receipt Date: 20090521
  Transmission Date: 20091009
  Serious: Yes (Disabling)
  Sender: FDA-Public Use
  Company Number: None

PATIENT
  Sex: Female
  Weight: 53.5244 kg

DRUGS (2)
  1. BECONASE AQ [Suspect]
     Indication: OTORRHOEA
     Dosage: 42 MCG METERED SPRAY (EACH NOSTRIL) 2 SPRAYS 2X/DAY NASAL
     Route: 045
     Dates: start: 20090401
  2. BECONASE AQ [Suspect]
     Indication: SINUS CONGESTION
     Dosage: 42 MCG METERED SPRAY (EACH NOSTRIL) 2 SPRAYS 2X/DAY NASAL
     Route: 045
     Dates: start: 20090401

REACTIONS (2)
  - AGEUSIA [None]
  - ANOSMIA [None]
